FAERS Safety Report 5841152-6 (Version None)
Quarter: 2008Q3

REPORT INFORMATION
  Report Type: 
  Country: None (occurrence: None)
  Receive Date: 20080807
  Receipt Date: 20080807
  Transmission Date: 20090109
  Serious: Yes (Other)
  Sender: FDA-Public Use
  Company Number: None

PATIENT
  Sex: Male

DRUGS (1)
  1. ZYVOX [Suspect]
     Dosage: 600MG EVERY 12 HOURS PO (DURATION: 1 DOSE)
     Route: 048
     Dates: start: 20080321, end: 20080321

REACTIONS (1)
  - DRUG HYPERSENSITIVITY [None]
